FAERS Safety Report 10170935 (Version 1)
Quarter: 2014Q2

REPORT INFORMATION
  Report Type: Spontaneous
  Country: NL (occurrence: NL)
  Receive Date: 20140514
  Receipt Date: 20140514
  Transmission Date: 20141212
  Serious: Yes (Other)
  Sender: FDA-Public Use
  Company Number: NL-AMGEN-NLDSP2014033827

PATIENT
  Age: 44 Year
  Sex: Female

DRUGS (1)
  1. ARANESP [Suspect]
     Indication: NEPHROGENIC ANAEMIA
     Dosage: 0.3 ML, (500 MCG/ML) Q4WK
     Route: 058
     Dates: start: 20081023

REACTIONS (1)
  - Rehabilitation therapy [Unknown]
